FAERS Safety Report 18657801 (Version 1)
Quarter: 2020Q4

REPORT INFORMATION
  Report Type: Spontaneous
  Country: AU (occurrence: AU)
  Receive Date: 20201223
  Receipt Date: 20201223
  Transmission Date: 20210114
  Serious: Yes (Other)
  Sender: FDA-Public Use
  Company Number: AU-NOVOPROD-766268

PATIENT
  Age: 84 Year
  Sex: Male
  Weight: 110 kg

DRUGS (5)
  1. MAGNESIUM [Concomitant]
     Active Substance: MAGNESIUM
     Indication: MINERAL SUPPLEMENTATION
     Dosage: UNK
     Route: 065
  2. APIXABAN [Concomitant]
     Active Substance: APIXABAN
     Indication: PRODUCT USED FOR UNKNOWN INDICATION
     Dosage: 2.5 MG, QD
     Route: 065
  3. APIDRA [Concomitant]
     Active Substance: INSULIN GLULISINE
     Indication: TYPE 2 DIABETES MELLITUS
     Dosage: UNK
     Route: 065
  4. OZEMPIC [Suspect]
     Active Substance: SEMAGLUTIDE
     Indication: TYPE 2 DIABETES MELLITUS
     Dosage: WEEK 7 0.05
     Route: 065
  5. LASIX [Concomitant]
     Active Substance: FUROSEMIDE
     Indication: PRODUCT USED FOR UNKNOWN INDICATION
     Dosage: 40 MG, QD
     Route: 065

REACTIONS (30)
  - Burning sensation [Unknown]
  - Wheezing [Unknown]
  - Osteoarthritis [Unknown]
  - Diarrhoea [Not Recovered/Not Resolved]
  - Constipation [Not Recovered/Not Resolved]
  - Dyspepsia [Not Recovered/Not Resolved]
  - Atrial fibrillation [Not Recovered/Not Resolved]
  - Mental disorder [Not Recovered/Not Resolved]
  - Injection site irritation [Unknown]
  - Decreased appetite [Unknown]
  - Swelling face [Unknown]
  - Taste disorder [Not Recovered/Not Resolved]
  - Injection site bruising [Unknown]
  - Rash [Unknown]
  - Eructation [Not Recovered/Not Resolved]
  - Injection site rash [Unknown]
  - Hypoglycaemia [Unknown]
  - Protein urine present [Unknown]
  - Blood pressure increased [Not Recovered/Not Resolved]
  - Injection site pruritus [Unknown]
  - Headache [Unknown]
  - Flatulence [Not Recovered/Not Resolved]
  - Nausea [Not Recovered/Not Resolved]
  - Pain [Not Recovered/Not Resolved]
  - Sneezing [Unknown]
  - Nasal congestion [Unknown]
  - Hunger [Unknown]
  - Injection site pain [Unknown]
  - Dehydration [Unknown]
  - Rhinorrhoea [Unknown]
